FAERS Safety Report 19047480 (Version 3)
Quarter: 2021Q2

REPORT INFORMATION
  Report Type: Spontaneous
  Country: DE (occurrence: DE)
  Receive Date: 20210323
  Receipt Date: 20210406
  Transmission Date: 20210717
  Serious: Yes (Life-Threatening, Hospitalization)
  Sender: FDA-Public Use
  Company Number: NVSC2021DE066476

PATIENT
  Age: 87 Year
  Sex: Female

DRUGS (1)
  1. ADALIMUMAB [Suspect]
     Active Substance: ADALIMUMAB
     Indication: PSORIASIS
     Dosage: 40 MG, Q2W (EVERY OTHER WEEK FOR 3 MONTHS)
     Route: 065

REACTIONS (3)
  - Granulomatous liver disease [Recovering/Resolving]
  - Disseminated tuberculosis [Recovering/Resolving]
  - Tuberculosis [Recovering/Resolving]
